FAERS Safety Report 25966535 (Version 1)
Quarter: 2025Q4

REPORT INFORMATION
  Report Type: Other
  Country: CA (occurrence: CA)
  Receive Date: 20251028
  Receipt Date: 20251028
  Transmission Date: 20260118
  Serious: Yes (Other)
  Sender: LUPIN
  Company Number: CA-LUPIN PHARMACEUTICALS INC.-2025-09583

PATIENT
  Age: 56 Year
  Sex: Female

DRUGS (121)
  1. PROPRANOLOL [Interacting]
     Active Substance: PROPRANOLOL HYDROCHLORIDE
     Indication: Toxicity to various agents
     Dosage: 120 MILLIGRAM, QD
     Route: 065
  2. PROPRANOLOL [Interacting]
     Active Substance: PROPRANOLOL HYDROCHLORIDE
     Indication: Nephropathy toxic
     Dosage: UNK
     Route: 065
  3. PROPRANOLOL [Interacting]
     Active Substance: PROPRANOLOL HYDROCHLORIDE
     Indication: Migraine
     Dosage: UNK
     Route: 065
  4. PROPRANOLOL [Interacting]
     Active Substance: PROPRANOLOL HYDROCHLORIDE
     Indication: Hypertension
     Dosage: UNK
     Route: 065
  5. PROPRANOLOL [Interacting]
     Active Substance: PROPRANOLOL HYDROCHLORIDE
     Dosage: UNK
     Route: 065
  6. PROPRANOLOL [Interacting]
     Active Substance: PROPRANOLOL HYDROCHLORIDE
     Dosage: UNK
     Route: 065
  7. PROPRANOLOL [Interacting]
     Active Substance: PROPRANOLOL HYDROCHLORIDE
     Dosage: UNK
     Route: 065
  8. PROPRANOLOL [Interacting]
     Active Substance: PROPRANOLOL HYDROCHLORIDE
     Dosage: UNK
     Route: 065
  9. PROPRANOLOL [Interacting]
     Active Substance: PROPRANOLOL HYDROCHLORIDE
     Dosage: UNK
     Route: 065
  10. PROPRANOLOL [Interacting]
     Active Substance: PROPRANOLOL HYDROCHLORIDE
     Dosage: UNK
     Route: 065
  11. PROPRANOLOL [Interacting]
     Active Substance: PROPRANOLOL HYDROCHLORIDE
     Dosage: UNK
     Route: 065
  12. PROPRANOLOL [Interacting]
     Active Substance: PROPRANOLOL HYDROCHLORIDE
     Dosage: UNK
     Route: 065
  13. PROPRANOLOL [Interacting]
     Active Substance: PROPRANOLOL HYDROCHLORIDE
     Dosage: UNK
     Route: 065
  14. PROPRANOLOL [Interacting]
     Active Substance: PROPRANOLOL HYDROCHLORIDE
     Dosage: UNK
     Route: 065
  15. PROPRANOLOL [Interacting]
     Active Substance: PROPRANOLOL HYDROCHLORIDE
     Dosage: UNK
     Route: 065
  16. PROPRANOLOL [Interacting]
     Active Substance: PROPRANOLOL HYDROCHLORIDE
     Dosage: UNK
     Route: 065
  17. PROPRANOLOL [Interacting]
     Active Substance: PROPRANOLOL HYDROCHLORIDE
     Dosage: UNK
     Route: 065
  18. PROPRANOLOL [Interacting]
     Active Substance: PROPRANOLOL HYDROCHLORIDE
     Dosage: 120 MILLIGRAM, QD
     Route: 065
  19. PROPRANOLOL [Interacting]
     Active Substance: PROPRANOLOL HYDROCHLORIDE
     Dosage: 120 MILLIGRAM, QD
     Route: 065
  20. PROPRANOLOL [Interacting]
     Active Substance: PROPRANOLOL HYDROCHLORIDE
     Dosage: 120 MILLIGRAM, QD
     Route: 065
  21. PROPRANOLOL [Interacting]
     Active Substance: PROPRANOLOL HYDROCHLORIDE
     Dosage: 120 MILLIGRAM, QD
     Route: 065
  22. PROPRANOLOL [Interacting]
     Active Substance: PROPRANOLOL HYDROCHLORIDE
     Dosage: UNK
     Route: 065
  23. PROPRANOLOL [Interacting]
     Active Substance: PROPRANOLOL HYDROCHLORIDE
     Dosage: UNK
     Route: 065
  24. AIMOVIG [Interacting]
     Active Substance: ERENUMAB-AOOE
     Indication: Migraine
     Dosage: UNK
  25. AMITRIPTYLINE [Interacting]
     Active Substance: AMITRIPTYLINE
     Indication: Migraine
     Dosage: UNK
     Route: 065
  26. AMITRIPTYLINE [Interacting]
     Active Substance: AMITRIPTYLINE
     Dosage: UNK
     Route: 065
  27. CANDESARTAN [Interacting]
     Active Substance: CANDESARTAN
     Indication: Migraine
     Dosage: UNK
     Route: 065
  28. CANDESARTAN [Interacting]
     Active Substance: CANDESARTAN
     Dosage: UNK
  29. CANDESARTAN [Interacting]
     Active Substance: CANDESARTAN
     Dosage: UNK
     Route: 065
  30. CANDESARTAN [Interacting]
     Active Substance: CANDESARTAN
     Dosage: UNK
     Route: 065
  31. CANDESARTAN [Interacting]
     Active Substance: CANDESARTAN
     Dosage: UNK
     Route: 065
  32. CYMBALTA [Interacting]
     Active Substance: DULOXETINE HYDROCHLORIDE
     Indication: Migraine
     Dosage: UNK
     Route: 065
  33. CYMBALTA [Interacting]
     Active Substance: DULOXETINE HYDROCHLORIDE
     Dosage: UNK
     Route: 065
  34. CYMBALTA [Interacting]
     Active Substance: DULOXETINE HYDROCHLORIDE
     Dosage: UNK
     Route: 065
  35. ERENUMAB-AOOE [Interacting]
     Active Substance: ERENUMAB-AOOE
     Indication: Migraine
     Dosage: UNK
     Route: 065
  36. ERENUMAB-AOOE [Interacting]
     Active Substance: ERENUMAB-AOOE
     Dosage: UNK
     Route: 065
  37. GABAPENTIN [Interacting]
     Active Substance: GABAPENTIN
     Indication: Migraine
     Dosage: UNK
     Route: 065
  38. GABAPENTIN [Interacting]
     Active Substance: GABAPENTIN
     Dosage: UNK
     Route: 065
  39. GABAPENTIN [Interacting]
     Active Substance: GABAPENTIN
     Dosage: UNK
     Route: 065
  40. GABAPENTIN [Interacting]
     Active Substance: GABAPENTIN
     Dosage: UNK
     Route: 065
  41. GABAPENTIN [Interacting]
     Active Substance: GABAPENTIN
     Dosage: UNK
     Route: 065
  42. GABAPENTIN [Interacting]
     Active Substance: GABAPENTIN
     Dosage: UNK
     Route: 065
  43. INDOMETHACIN [Interacting]
     Active Substance: INDOMETHACIN
     Indication: Migraine
     Dosage: UNK
     Route: 065
  44. MIRTAZAPINE [Interacting]
     Active Substance: MIRTAZAPINE
     Indication: Migraine
     Dosage: UNK
  45. MIRTAZAPINE [Interacting]
     Active Substance: MIRTAZAPINE
     Dosage: UNK
     Route: 065
  46. MIRTAZAPINE [Interacting]
     Active Substance: MIRTAZAPINE
     Dosage: UNK
  47. MIRTAZAPINE [Interacting]
     Active Substance: MIRTAZAPINE
     Dosage: UNK
     Route: 065
  48. MIRTAZAPINE [Interacting]
     Active Substance: MIRTAZAPINE
     Dosage: UNK
     Route: 065
  49. MIRTAZAPINE [Interacting]
     Active Substance: MIRTAZAPINE
     Dosage: UNK
     Route: 065
  50. MIRTAZAPINE [Interacting]
     Active Substance: MIRTAZAPINE
     Dosage: UNK
     Route: 065
  51. ONDANSETRON [Interacting]
     Active Substance: ONDANSETRON
     Indication: Migraine
     Dosage: UNK
     Route: 065
  52. ONDANSETRON [Interacting]
     Active Substance: ONDANSETRON
     Dosage: UNK
     Route: 065
  53. ONDANSETRON [Interacting]
     Active Substance: ONDANSETRON
     Dosage: UNK
     Route: 065
  54. ONDANSETRON [Interacting]
     Active Substance: ONDANSETRON
     Dosage: UNK
     Route: 065
  55. OXYCODONE [Interacting]
     Active Substance: OXYCODONE
     Indication: Migraine
     Dosage: UNK
     Route: 065
  56. PERINDOPRIL [Interacting]
     Active Substance: PERINDOPRIL
     Indication: Migraine
     Dosage: UNK
     Route: 065
  57. PERINDOPRIL [Interacting]
     Active Substance: PERINDOPRIL
     Indication: Toxicity to various agents
     Dosage: UNK
  58. PERINDOPRIL [Interacting]
     Active Substance: PERINDOPRIL
     Indication: Nephropathy toxic
     Dosage: UNK
     Route: 065
  59. PERINDOPRIL [Interacting]
     Active Substance: PERINDOPRIL
     Indication: Nephropathy
     Dosage: UNK
     Route: 065
  60. PERINDOPRIL [Interacting]
     Active Substance: PERINDOPRIL
     Indication: Hypertension
     Dosage: UNK
     Route: 065
  61. PERINDOPRIL [Interacting]
     Active Substance: PERINDOPRIL
     Dosage: UNK
     Route: 065
  62. PERINDOPRIL [Interacting]
     Active Substance: PERINDOPRIL
     Dosage: UNK
     Route: 065
  63. PERINDOPRIL [Interacting]
     Active Substance: PERINDOPRIL
     Dosage: UNK
     Route: 065
  64. PERINDOPRIL [Interacting]
     Active Substance: PERINDOPRIL
     Dosage: UNK
     Route: 065
  65. PERINDOPRIL [Interacting]
     Active Substance: PERINDOPRIL
     Dosage: UNK
     Route: 065
  66. PERINDOPRIL [Interacting]
     Active Substance: PERINDOPRIL
     Dosage: UNK
     Route: 065
  67. PERINDOPRIL [Interacting]
     Active Substance: PERINDOPRIL
     Dosage: UNK
     Route: 065
  68. PERINDOPRIL [Interacting]
     Active Substance: PERINDOPRIL
     Dosage: UNK
     Route: 065
  69. PERINDOPRIL [Interacting]
     Active Substance: PERINDOPRIL
     Dosage: UNK
     Route: 065
  70. PERINDOPRIL [Interacting]
     Active Substance: PERINDOPRIL
     Dosage: UNK
     Route: 065
  71. PERINDOPRIL [Interacting]
     Active Substance: PERINDOPRIL
     Dosage: UNK
     Route: 065
  72. PERINDOPRIL [Interacting]
     Active Substance: PERINDOPRIL
     Dosage: UNK
     Route: 065
  73. PERINDOPRIL [Interacting]
     Active Substance: PERINDOPRIL
     Dosage: UNK
     Route: 065
  74. PERINDOPRIL [Interacting]
     Active Substance: PERINDOPRIL
     Dosage: UNK
     Route: 065
  75. PERINDOPRIL [Interacting]
     Active Substance: PERINDOPRIL
     Dosage: UNK
     Route: 065
  76. PERINDOPRIL [Interacting]
     Active Substance: PERINDOPRIL
     Dosage: UNK
     Route: 065
  77. PERINDOPRIL [Interacting]
     Active Substance: PERINDOPRIL
     Dosage: UNK
     Route: 065
  78. PERINDOPRIL [Interacting]
     Active Substance: PERINDOPRIL
     Dosage: UNK
     Route: 065
  79. PERINDOPRIL [Interacting]
     Active Substance: PERINDOPRIL
     Dosage: UNK
     Route: 065
  80. PERINDOPRIL [Interacting]
     Active Substance: PERINDOPRIL
     Dosage: UNK
     Route: 065
  81. PERINDOPRIL [Interacting]
     Active Substance: PERINDOPRIL
     Dosage: UNK
     Route: 065
  82. PERINDOPRIL [Interacting]
     Active Substance: PERINDOPRIL
     Dosage: UNK
     Route: 065
  83. PERINDOPRIL [Interacting]
     Active Substance: PERINDOPRIL
     Dosage: UNK
     Route: 065
  84. PERINDOPRIL [Interacting]
     Active Substance: PERINDOPRIL
     Dosage: UNK
     Route: 065
  85. PERINDOPRIL [Interacting]
     Active Substance: PERINDOPRIL
     Dosage: UNK
     Route: 065
  86. PERINDOPRIL [Interacting]
     Active Substance: PERINDOPRIL
     Dosage: UNK
     Route: 065
  87. PERINDOPRIL [Interacting]
     Active Substance: PERINDOPRIL
     Dosage: UNK
     Route: 065
  88. PERINDOPRIL [Interacting]
     Active Substance: PERINDOPRIL
     Dosage: UNK
     Route: 065
  89. PERINDOPRIL [Interacting]
     Active Substance: PERINDOPRIL
     Dosage: UNK
     Route: 065
  90. PERINDOPRIL [Interacting]
     Active Substance: PERINDOPRIL
     Dosage: UNK
     Route: 065
  91. PERINDOPRIL [Interacting]
     Active Substance: PERINDOPRIL
     Dosage: UNK
     Route: 065
  92. PERINDOPRIL [Interacting]
     Active Substance: PERINDOPRIL
     Dosage: UNK
     Route: 065
  93. PERINDOPRIL [Interacting]
     Active Substance: PERINDOPRIL
     Dosage: UNK
     Route: 065
  94. PERINDOPRIL [Interacting]
     Active Substance: PERINDOPRIL
     Dosage: UNK
     Route: 065
  95. PERINDOPRIL [Interacting]
     Active Substance: PERINDOPRIL
     Dosage: UNK
     Route: 065
  96. PERINDOPRIL [Interacting]
     Active Substance: PERINDOPRIL
     Dosage: UNK
     Route: 065
  97. PERINDOPRIL [Interacting]
     Active Substance: PERINDOPRIL
     Dosage: UNK
     Route: 065
  98. PERINDOPRIL [Interacting]
     Active Substance: PERINDOPRIL
     Dosage: UNK
     Route: 065
  99. PERINDOPRIL [Interacting]
     Active Substance: PERINDOPRIL
     Dosage: UNK
     Route: 065
  100. PERINDOPRIL [Interacting]
     Active Substance: PERINDOPRIL
     Dosage: UNK
     Route: 065
  101. PERINDOPRIL [Interacting]
     Active Substance: PERINDOPRIL
     Dosage: UNK
     Route: 065
  102. DULOXETINE HYDROCHLORIDE [Interacting]
     Active Substance: DULOXETINE HYDROCHLORIDE
     Indication: Migraine
     Dosage: UNK
     Route: 065
  103. INDOMETHACIN [Interacting]
     Active Substance: INDOMETHACIN
     Indication: Migraine
     Dosage: UNK
     Route: 065
  104. INDOMETHACIN [Interacting]
     Active Substance: INDOMETHACIN
     Dosage: UNK
     Route: 065
  105. ONDANSETRON [Interacting]
     Active Substance: ONDANSETRON
     Indication: Migraine
     Dosage: UNK
     Route: 065
  106. ONDANSETRON [Interacting]
     Active Substance: ONDANSETRON
     Dosage: UNK
     Route: 065
  107. ONDANSETRON [Interacting]
     Active Substance: ONDANSETRON
     Dosage: UNK
     Route: 065
  108. ONDANSETRON [Interacting]
     Active Substance: ONDANSETRON
     Dosage: UNK
     Route: 065
  109. DULOXETINE [Interacting]
     Active Substance: DULOXETINE
     Indication: Migraine
     Dosage: UNK
     Route: 065
  110. TOPIRAMATE [Interacting]
     Active Substance: TOPIRAMATE
     Indication: Migraine
     Dosage: UNK
  111. TOPIRAMATE [Interacting]
     Active Substance: TOPIRAMATE
     Dosage: UNK
     Route: 065
  112. TOPIRAMATE [Interacting]
     Active Substance: TOPIRAMATE
     Dosage: UNK
     Route: 065
  113. TOPIRAMATE [Interacting]
     Active Substance: TOPIRAMATE
     Dosage: UNK
     Route: 065
  114. BOTULINUM TOXIN TYPE A [Concomitant]
     Active Substance: BOTULINUM TOXIN TYPE A
     Indication: Migraine
     Dosage: (POWDER FOR SOLUTION)
     Route: 065
  115. BOTULINUM TOXIN TYPE A [Concomitant]
     Active Substance: BOTULINUM TOXIN TYPE A
     Dosage: POWDER FOR SOLUTION FOR INJECTION/INFUSION
     Route: 065
  116. DOMPERIDONE [Concomitant]
     Active Substance: DOMPERIDONE
     Indication: Migraine
     Dosage: UNK
     Route: 065
  117. DOMPERIDONE MALEATE [Concomitant]
     Active Substance: DOMPERIDONE MALEATE
     Indication: Migraine
     Dosage: UNK
  118. DOMPERIDONE MALEATE [Concomitant]
     Active Substance: DOMPERIDONE MALEATE
     Dosage: UNK
     Route: 065
  119. DOMPERIDONE MALEATE [Concomitant]
     Active Substance: DOMPERIDONE MALEATE
     Dosage: UNK
     Route: 065
  120. DIVALPROEX SODIUM [Interacting]
     Active Substance: DIVALPROEX SODIUM
     Indication: Migraine
     Dosage: UNK
     Route: 065
  121. DIVALPROEX SODIUM [Interacting]
     Active Substance: DIVALPROEX SODIUM
     Dosage: UNK
     Route: 065

REACTIONS (14)
  - Contraindicated product administered [Unknown]
  - Hypertension [Unknown]
  - Drug ineffective for unapproved indication [Unknown]
  - Drug intolerance [Unknown]
  - Depressed level of consciousness [Unknown]
  - Toxicity to various agents [Unknown]
  - Drug ineffective [Unknown]
  - Drug interaction [Unknown]
  - Electrocardiogram QT prolonged [Unknown]
  - Fall [Unknown]
  - Mental disorder [Unknown]
  - Nephropathy toxic [Unknown]
  - Serotonin syndrome [Unknown]
  - Off label use [Unknown]
